FAERS Safety Report 8111559-5 (Version None)
Quarter: 2012Q1

REPORT INFORMATION
  Report Type: 
  Country: None (occurrence: None)
  Receive Date: 20120202
  Receipt Date: 20120202
  Transmission Date: 20120608
  Serious: No
  Sender: FDA-Public Use
  Company Number: None

PATIENT
  Age: 50 Year
  Sex: Female

DRUGS (1)
  1. ORENCIA [Suspect]
     Indication: RHEUMATOID ARTHRITIS
     Dosage: 125MG EVERY WEEK SC
     Route: 058
     Dates: start: 20111111, end: 20120126

REACTIONS (2)
  - GINGIVAL BLEEDING [None]
  - NECROTISING ULCERATIVE GINGIVOSTOMATITIS [None]
